FAERS Safety Report 9136479 (Version 1)
Quarter: 2013Q1

REPORT INFORMATION
  Report Type: Spontaneous
  Country: US (occurrence: US)
  Receive Date: 20130219
  Receipt Date: 20130219
  Transmission Date: 20140127
  Serious: No
  Sender: FDA-Public Use
  Company Number: US-BRISTOL-MYERS SQUIBB COMPANY-16839771

PATIENT
  Age: 73 Year
  Sex: Female

DRUGS (2)
  1. ORENCIA [Suspect]
     Dosage: LAST INF: 30JUL2012
     Route: 042
     Dates: start: 20120524
  2. TYLENOL [Concomitant]
     Dosage: ARTHRITIS FORMULA

REACTIONS (3)
  - Rheumatoid arthritis [Unknown]
  - Memory impairment [Unknown]
  - Insomnia [Unknown]
